FAERS Safety Report 5295272-8 (Version None)
Quarter: 2007Q2

REPORT INFORMATION
  Report Type: 
  Country: None (occurrence: None)
  Receive Date: 20070412
  Receipt Date: 20070403
  Transmission Date: 20071010
  Serious: Yes (Other)
  Sender: FDA-Public Use
  Company Number: US-PFIZER INC-2007027607

PATIENT
  Sex: Female
  Weight: 96.6 kg

DRUGS (2)
  1. DETROL LA [Suspect]
     Indication: URINARY INCONTINENCE
  2. CELEBREX [Suspect]
     Indication: OSTEOARTHRITIS

REACTIONS (1)
  - HYPOTHYROIDISM [None]
